FAERS Safety Report 7373805-5 (Version None)
Quarter: 2011Q1

REPORT INFORMATION
  Report Type: 
  Country: None (occurrence: None)
  Receive Date: 20110325
  Receipt Date: 20110316
  Transmission Date: 20110831
  Serious: No
  Sender: FDA-Public Use
  Company Number: US-PFIZER INC-2011058673

PATIENT
  Sex: Female
  Weight: 107 kg

DRUGS (12)
  1. ESTRADIOL [Concomitant]
     Dosage: 1 MG, UNK
  2. VITAMIN D [Concomitant]
     Dosage: 400 UNK, UNK
  3. SYNTHROID [Concomitant]
     Dosage: 25 UG, UNK
  4. HYDROCODONE [Concomitant]
  5. PROVIGIL [Concomitant]
     Dosage: 100 MG, UNK
  6. XYREM [Concomitant]
  7. FLINTSTONES MULTIPLE VITAMINS [Concomitant]
  8. GENOTROPIN [Suspect]
     Dosage: 0.2 MG, 1X/DAY
     Route: 058
  9. VITAMIN B-12 [Concomitant]
     Dosage: 100 UG, UNK
  10. OXYMORPHONE [Concomitant]
     Dosage: 5 MG, UNK
  11. CYMBALTA [Concomitant]
     Dosage: 20 MG, UNK
  12. ABILIFY [Concomitant]
     Dosage: 10 MG, UNK

REACTIONS (2)
  - RASH [None]
  - OEDEMA PERIPHERAL [None]
